FAERS Safety Report 9362881 (Version 1)
Quarter: 2013Q2

REPORT INFORMATION
  Report Type: Spontaneous
  Country: US (occurrence: None)
  Receive Date: 20130621
  Receipt Date: 20130621
  Transmission Date: 20140414
  Serious: No
  Sender: FDA-Public Use
  Company Number: None

PATIENT
  Age: 89 Year
  Sex: Female
  Weight: 73.94 kg

DRUGS (2)
  1. CEFEPIME [Suspect]
     Indication: URINARY TRACT INFECTION
     Dosage: MAY -} JUNE 5
     Route: 040
  2. CEFEPIME [Suspect]
     Indication: CULTURE URINE
     Dosage: MAY -} JUNE 5
     Route: 040

REACTIONS (6)
  - Ocular hyperaemia [None]
  - Eye pruritus [None]
  - Erythema [None]
  - Pain [None]
  - Medical device complication [None]
  - Medical device complication [None]
